FAERS Safety Report 11022050 (Version 3)
Quarter: 2015Q2

REPORT INFORMATION
  Report Type: Spontaneous
  Country: US (occurrence: US)
  Receive Date: 20150413
  Receipt Date: 20150514
  Transmission Date: 20150821
  Serious: Yes (Other)
  Sender: FDA-Public Use
  Company Number: US-BAYER-2015-116039

PATIENT
  Age: 35 Year
  Sex: Female

DRUGS (1)
  1. MIRENA [Suspect]
     Active Substance: LEVONORGESTREL
     Indication: CONTRACEPTION
     Dosage: 20 MCG/24HR, CONT
     Route: 015
     Dates: start: 20140502, end: 20150402

REACTIONS (6)
  - Abdominal pain lower [None]
  - Nephrolithiasis [None]
  - Device expulsion [Recovered/Resolved]
  - Menorrhagia [None]
  - Abdominal pain lower [None]
  - Off label use of device [None]

NARRATIVE: CASE EVENT DATE: 2014
